FAERS Safety Report 19021197 (Version 1)
Quarter: 2021Q1

REPORT INFORMATION
  Report Type: Spontaneous
  Country: US (occurrence: US)
  Receive Date: 20210317
  Receipt Date: 20210317
  Transmission Date: 20210420
  Serious: Yes (Hospitalization, Other)
  Sender: FDA-Public Use
  Company Number: US-ALLERGAN-2111174US

PATIENT
  Sex: Female

DRUGS (1)
  1. LILETTA [Suspect]
     Active Substance: LEVONORGESTREL
     Indication: PRODUCT USED FOR UNKNOWN INDICATION
     Dosage: 52 MG, SINGLE
     Route: 015
     Dates: start: 20171020, end: 20190721

REACTIONS (4)
  - Septic shock [Unknown]
  - Uterine perforation [Unknown]
  - Product complaint [Unknown]
  - Device dislocation [Unknown]

NARRATIVE: CASE EVENT DATE: 201907
